FAERS Safety Report 25797486 (Version 2)
Quarter: 2025Q3

REPORT INFORMATION
  Report Type: Report from Study
  Country: KR (occurrence: KR)
  Receive Date: 20250912
  Receipt Date: 20250922
  Transmission Date: 20251020
  Serious: Yes (Other)
  Sender: TAKEDA
  Company Number: KR-TAKEDA-2025TUS079712

PATIENT
  Age: 70 Year
  Sex: Male
  Weight: 67 kg

DRUGS (21)
  1. MARIBAVIR [Suspect]
     Active Substance: MARIBAVIR
     Indication: Cytomegalovirus infection
     Dosage: 400 MILLIGRAM, BID
     Dates: start: 20250623, end: 20250703
  2. HARNAL [Concomitant]
     Active Substance: TAMSULOSIN HYDROCHLORIDE
     Indication: Myelodysplastic syndrome
     Dosage: 0.2 MILLIGRAM, QD
     Dates: start: 20240618
  3. Solondo [Concomitant]
     Indication: Acute graft versus host disease in skin
     Dosage: 5 MILLIGRAM, BID
     Dates: start: 20250610
  4. RUXOLITINIB [Concomitant]
     Active Substance: RUXOLITINIB
     Indication: Acute graft versus host disease
     Dosage: 5 MILLIGRAM, BID
     Dates: start: 20250613, end: 20250626
  5. RUXOLITINIB [Concomitant]
     Active Substance: RUXOLITINIB
     Dosage: 5 MILLIGRAM, QD
     Dates: start: 20250627
  6. URSODIOL [Concomitant]
     Active Substance: URSODIOL
     Indication: Acute graft versus host disease
     Dosage: 200 MILLIGRAM, TID
     Dates: start: 20250614, end: 20250628
  7. URSODIOL [Concomitant]
     Active Substance: URSODIOL
     Dosage: 100 MILLIGRAM, TID
     Dates: start: 20250629
  8. Pennel [Concomitant]
     Indication: Acute graft versus host disease
     Dosage: UNK UNK, TID
     Dates: start: 20250508
  9. Dicamax d plus [Concomitant]
     Indication: Osteoporosis
     Dosage: UNK UNK, QD
     Dates: start: 20250320
  10. MOSAPRIDE CITRATE [Concomitant]
     Active Substance: MOSAPRIDE CITRATE
     Indication: Gastritis prophylaxis
     Dosage: 5 MILLIGRAM, TID
     Dates: start: 20250601, end: 20250628
  11. Norzyme [Concomitant]
     Indication: Gastritis prophylaxis
     Dosage: UNK UNK, TID
     Dates: start: 20250605, end: 20250628
  12. PANTOPRAZOLE SODIUM [Concomitant]
     Active Substance: PANTOPRAZOLE SODIUM
     Indication: Gastritis prophylaxis
     Dosage: 40 MILLIGRAM, QD
     Dates: start: 20250515, end: 20250627
  13. Laevan forte [Concomitant]
     Indication: Proctalgia
     Dosage: 2 GRAM, QD
     Dates: start: 20250519, end: 20250701
  14. SULFAMETHOXAZOLE\TRIMETHOPRIM [Concomitant]
     Active Substance: SULFAMETHOXAZOLE\TRIMETHOPRIM
     Indication: Infection prophylaxis
     Dosage: 400 MILLIGRAM, QD
     Dates: start: 20250613, end: 20250628
  15. Hepa merz [Concomitant]
     Indication: Acute graft versus host disease in liver
     Dosage: 2000 MILLIGRAM, QD
     Dates: start: 20250621, end: 20250708
  16. ALLEGRA [Concomitant]
     Active Substance: FEXOFENADINE HYDROCHLORIDE
     Indication: Acute graft versus host disease in skin
     Dosage: 120 MILLIGRAM, QD
     Dates: start: 20250515, end: 20250628
  17. CEFTRIAXONE [Concomitant]
     Active Substance: CEFTRIAXONE
     Indication: Parainfluenzae virus infection
     Dosage: 2 GRAM, QD
     Dates: start: 20250624, end: 20250626
  18. ALDACTONE [Concomitant]
     Active Substance: SPIRONOLACTONE
     Indication: Hypertension
     Dosage: 25 MILLIGRAM, QD
     Dates: start: 20250628, end: 20250717
  19. TORSEMIDE [Concomitant]
     Active Substance: TORSEMIDE
     Indication: Hypertension
     Dosage: 10 MILLIGRAM, QD
     Dates: start: 20250628, end: 20250628
  20. ACTIFED (PSEUDOEPHEDRINE HYDROCHLORIDE\TRIPROLIDINE HYDROCHLORIDE) [Concomitant]
     Active Substance: PSEUDOEPHEDRINE HYDROCHLORIDE\TRIPROLIDINE HYDROCHLORIDE
     Indication: Parainfluenzae virus infection
     Dosage: UNK UNK, QD
     Dates: start: 20250624, end: 20250717
  21. THEOBROMINE [Concomitant]
     Active Substance: THEOBROMINE
     Indication: Parainfluenzae virus infection
     Dosage: 300 MILLIGRAM, BID
     Dates: start: 20250626, end: 20250717

REACTIONS (2)
  - Pneumonia [Recovered/Resolved]
  - Oral candidiasis [Recovered/Resolved]

NARRATIVE: CASE EVENT DATE: 20250626
